FAERS Safety Report 12090584 (Version 1)
Quarter: 2016Q1

REPORT INFORMATION
  Report Type: Report from Study
  Country: US (occurrence: US)
  Receive Date: 20160218
  Receipt Date: 20160218
  Transmission Date: 20160526
  Serious: Yes (Other)
  Sender: FDA-Public Use
  Company Number: US-UCBSA-2016005451

PATIENT
  Age: 27 Year

DRUGS (5)
  1. LAMICTAL [Concomitant]
     Active Substance: LAMOTRIGINE
     Indication: COMPLEX PARTIAL SEIZURES
     Dosage: UNK
  2. LACOSAMIDE [Suspect]
     Active Substance: LACOSAMIDE
     Indication: COMPLEX PARTIAL SEIZURES
     Dosage: UNK
  3. KEPPRA [Suspect]
     Active Substance: LEVETIRACETAM
     Indication: COMPLEX PARTIAL SEIZURES
     Dosage: UNK
  4. ONFI [Concomitant]
     Active Substance: CLOBAZAM
     Indication: COMPLEX PARTIAL SEIZURES
     Dosage: UNK
  5. TOPAMAX [Concomitant]
     Active Substance: TOPIRAMATE
     Indication: COMPLEX PARTIAL SEIZURES
     Dosage: UNK

REACTIONS (1)
  - Seizure [Unknown]
